FAERS Safety Report 20626657 (Version 1)
Quarter: 2022Q1

REPORT INFORMATION
  Report Type: Report from Study
  Country: US (occurrence: None)
  Receive Date: 20220323
  Receipt Date: 20220323
  Transmission Date: 20220424
  Serious: Yes (Other)
  Sender: FDA-Public Use
  Company Number: US-ROCHE-2650256

PATIENT
  Age: 56 Year
  Sex: Male
  Weight: 53 kg

DRUGS (3)
  1. ATEZOLIZUMAB [Suspect]
     Active Substance: ATEZOLIZUMAB
     Indication: Non-small cell lung cancer stage IV
     Route: 042
     Dates: start: 20200220, end: 20210624
  2. BEVACIZUMAB [Suspect]
     Active Substance: BEVACIZUMAB
     Indication: Non-small cell lung cancer stage IV
     Route: 042
     Dates: start: 20200220, end: 20200624
  3. PEMETREXED [Suspect]
     Active Substance: PEMETREXED
     Indication: Non-small cell lung cancer stage IV
     Route: 042
     Dates: start: 20200220, end: 20200624

REACTIONS (1)
  - Peripheral artery thrombosis [Unknown]

NARRATIVE: CASE EVENT DATE: 20200624
